FAERS Safety Report 20079102 (Version 2)
Quarter: 2021Q4

REPORT INFORMATION
  Report Type: Report from Study
  Country: EG (occurrence: EG)
  Receive Date: 20211117
  Receipt Date: 20211124
  Transmission Date: 20220303
  Serious: Yes (Other)
  Sender: FDA-Public Use
  Company Number: EG-NOVARTISPH-NVSC2021EG259122

PATIENT
  Age: 32 Year
  Sex: Female

DRUGS (7)
  1. GILENYA [Suspect]
     Active Substance: FINGOLIMOD HYDROCHLORIDE
     Indication: Multiple sclerosis
     Dosage: 0.5 MG, QD
     Route: 048
     Dates: start: 20210128
  2. ALDOMET [Concomitant]
     Active Substance: METHYLDOPA
     Indication: Hypertension
     Dosage: 1 DF, QD
     Route: 048
     Dates: start: 2019
  3. ASPIRIN [Concomitant]
     Active Substance: ASPIRIN
     Indication: Deep vein thrombosis
     Dosage: 2 DF, QD
     Route: 048
     Dates: start: 202012
  4. DINITRA [Concomitant]
     Indication: Cerebral disorder
     Dosage: 2 DF, QD
     Route: 048
     Dates: start: 202012
  5. VITAMINS [Concomitant]
     Active Substance: VITAMINS
     Indication: Iron deficiency
     Dosage: 1 UNK, QD (SPONE)
     Route: 048
     Dates: start: 202101
  6. VIDROP [Concomitant]
     Indication: Hypovitaminosis
     Dosage: 0.5 DRP, QD
     Route: 048
     Dates: start: 202101
  7. POLYFRESH [Concomitant]
     Indication: Eye lubrication therapy
     Dosage: 4 DF, QD
     Route: 065
     Dates: start: 20210929

REACTIONS (2)
  - Cataract [Not Recovered/Not Resolved]
  - Vision blurred [Not Recovered/Not Resolved]

NARRATIVE: CASE EVENT DATE: 20210301
